FAERS Safety Report 8631881 (Version 2)
Quarter: 2012Q4

REPORT INFORMATION
  Report Type: 
  Country: US (occurrence: US)
  Receive Date: 20120625
  Receipt Date: 20120830
  Transmission Date: 20130627
  Serious: Yes (Other)
  Sender: FDA-Public Use
  Company Number: US-BAYER-2012-061490

PATIENT
  Age: 45 Year
  Sex: Female
  Weight: 82.99 kg

DRUGS (1)
  1. MIRENA [Suspect]
     Indication: DYSFUNCTIONAL UTERINE BLEEDING
     Dosage: 20 mcg/24hr, CONT
     Route: 015
     Dates: start: 200912, end: 20120613

REACTIONS (3)
  - Genital haemorrhage [Recovering/Resolving]
  - Uterine leiomyoma [None]
  - Endometritis [None]
